FAERS Safety Report 8542616-7 (Version None)
Quarter: 2012Q3

REPORT INFORMATION
  Report Type: 
  Country: None (occurrence: None)
  Receive Date: 20120726
  Receipt Date: 20120723
  Transmission Date: 20120928
  Serious: Yes (Hospitalization, Other)
  Sender: FDA-Public Use
  Company Number: US-009507513-1207USA009562

PATIENT

DRUGS (10)
  1. DIAMICRON [Concomitant]
  2. IPERTEN [Concomitant]
  3. RASILEZ [Suspect]
     Dosage: 150 MG, QD
     Route: 048
  4. VALSARTAN  AND HYDROCHLOROTHIAZIDE [Concomitant]
  5. DIPROSALIC [Concomitant]
  6. JANUMET [Concomitant]
     Route: 048
  7. GLUCOPHAGE [Concomitant]
  8. METFORMIN HCL [Concomitant]
  9. SITAGLIPTIN PHOSPHATE [Concomitant]
  10. JANUVIA [Suspect]
     Dosage: 100 MG, QD
     Route: 048

REACTIONS (4)
  - PERIORBITAL DISORDER [None]
  - ERYTHEMA [None]
  - FACE OEDEMA [None]
  - DERMATOSIS [None]
